FAERS Safety Report 8501985-4 (Version None)
Quarter: 2012Q2

REPORT INFORMATION
  Report Type: 
  Country: None (occurrence: None)
  Receive Date: 20120405
  Receipt Date: 20100914
  Transmission Date: 20120825
  Serious: Yes (Other)
  Sender: FDA-Public Use
  Company Number: PHHY2010US50470

PATIENT
  Age: 75 Year
  Sex: Female

DRUGS (35)
  1. THERAGESIC (MENTHOL, METHYL SALICYLATE) [Concomitant]
  2. ACETAMINOPHEN [Concomitant]
  3. OMEPRAZOLE [Concomitant]
  4. CALCIUM CARBONATE [Concomitant]
  5. PANTOPRAZOLE SODIUM [Concomitant]
  6. ATIVAN [Concomitant]
  7. AMBIEN [Concomitant]
  8. VOLTAREN (DICLOFENAC DIETHYLAMINE) [Concomitant]
  9. MULTIVITAMIN [Concomitant]
  10. PLAVIX [Concomitant]
  11. OSCAL (CALCIUM CARBONATE) [Concomitant]
  12. LOPERAMIDE [Concomitant]
  13. MILK OF MAGNESIA (MAGNSEIUM HYDROXIDE) [Concomitant]
  14. PRILOSEC [Concomitant]
  15. NORCO [Concomitant]
  16. RECLAST [Suspect]
     Dosage: INFUSION
     Dates: start: 20080101
  17. VITAMIN D [Concomitant]
  18. PROTONIX [Concomitant]
  19. LEVAQUIN [Concomitant]
  20. PHENERGAN HCL [Concomitant]
  21. BENADRYL [Concomitant]
  22. IRON-DEXTRAN COMPLEX INJ [Concomitant]
  23. OXYBUTYNIN [Concomitant]
  24. DOCUSATE CALCIUM (DOCUSATE CALCIUM) [Concomitant]
  25. SENNA LAX (SENNA, SENNA ALEXANDRINA) [Concomitant]
  26. ACETAMINOPHEN [Concomitant]
  27. CATAPRES /UNK/(CLONIDINE) [Concomitant]
  28. WARFARIN SODIUM [Concomitant]
  29. PANTOPRAZOLE [Concomitant]
  30. FLONASE [Concomitant]
  31. TENORMIN [Concomitant]
  32. VITAMIN TAB [Concomitant]
  33. SIMETHICONE (SIMETHICONE) [Concomitant]
  34. PEPCID [Concomitant]
  35. LACTAID ULTRA (TILACTASE) [Concomitant]

REACTIONS (22)
  - DRY SKIN [None]
  - FATIGUE [None]
  - FEELING ABNORMAL [None]
  - HYPOAESTHESIA [None]
  - MEMORY IMPAIRMENT [None]
  - MUSCLE SPASMS [None]
  - ASTHENIA [None]
  - ANXIETY [None]
  - INFLUENZA LIKE ILLNESS [None]
  - ARTHRALGIA [None]
  - ERYTHEMA [None]
  - NAUSEA [None]
  - DECREASED APPETITE [None]
  - BLOOD PRESSURE INCREASED [None]
  - DIZZINESS [None]
  - INSOMNIA [None]
  - REPETITIVE SPEECH [None]
  - MUSCULAR WEAKNESS [None]
  - PARAESTHESIA [None]
  - PALPITATIONS [None]
  - MALAISE [None]
  - ABDOMINAL DISCOMFORT [None]
